FAERS Safety Report 9116144 (Version 1)
Quarter: 2013Q1

REPORT INFORMATION
  Report Type: Spontaneous
  Country: US (occurrence: US)
  Receive Date: 20130225
  Receipt Date: 20130225
  Transmission Date: 20140127
  Serious: No
  Sender: FDA-Public Use
  Company Number: US-ENDO PHARMACEUTICALS INC.-FORT20120220

PATIENT
  Sex: Male

DRUGS (1)
  1. FORTESTA [Suspect]
     Indication: HYPOGONADISM
     Route: 061

REACTIONS (2)
  - Drug administered at inappropriate site [Recovered/Resolved]
  - Drug ineffective [Recovered/Resolved]
